FAERS Safety Report 9391311 (Version 2)
Quarter: 2013Q3

REPORT INFORMATION
  Report Type: Report from Study
  Country: ID (occurrence: ID)
  Receive Date: 20130709
  Receipt Date: 20130725
  Transmission Date: 20140515
  Serious: Yes (Hospitalization)
  Sender: FDA-Public Use
  Company Number: ID-SANOFI-AVENTIS-2013SA066600

PATIENT
  Age: 30 Year
  Sex: Male

DRUGS (2)
  1. PRIMAQUINE [Suspect]
     Indication: MALARIA
     Dosage: DOSE: 45 MG/DAY X 14
     Route: 065
     Dates: end: 20130424
  2. ARTESUNATE/PYRONARIDINE TETRAPHOSPHATE [Suspect]
     Indication: MALARIA
     Dosage: DOSE: 4 TABLETS/DAY X 3 D
     Route: 065
     Dates: end: 20130424

REACTIONS (1)
  - Typhoid fever [Recovered/Resolved]
